APPROVED DRUG PRODUCT: VARIBAR THIN LIQUID
Active Ingredient: BARIUM SULFATE
Strength: 81%
Dosage Form/Route: FOR SUSPENSION;ORAL
Application: N208036 | Product #004
Applicant: BRACCO DIAGNOSTICS INC
Approved: Apr 30, 2019 | RLD: Yes | RS: Yes | Type: RX